FAERS Safety Report 18595100 (Version 1)
Quarter: 2020Q4

REPORT INFORMATION
  Report Type: Spontaneous
  Country: US (occurrence: US)
  Receive Date: 20201209
  Receipt Date: 20201209
  Transmission Date: 20210114
  Serious: Yes (Hospitalization)
  Sender: FDA-Public Use
  Company Number: None

PATIENT
  Age: 80 Year
  Sex: Female
  Weight: 83.9 kg

DRUGS (18)
  1. FUROSEMIDE. [Concomitant]
     Active Substance: FUROSEMIDE
     Dates: start: 20201208, end: 20201208
  2. METHYLPREDNISOLONE. [Concomitant]
     Active Substance: METHYLPREDNISOLONE
     Dates: start: 20201207, end: 20201208
  3. NORMAL SALINE INFUSION [Concomitant]
     Dates: start: 20201207, end: 20201207
  4. APIXABAN [Concomitant]
     Active Substance: APIXABAN
     Dates: start: 20201208
  5. ENOXAPARIN [Concomitant]
     Active Substance: ENOXAPARIN
     Dates: start: 20201207, end: 20201207
  6. ONDANSETRON [Concomitant]
     Active Substance: ONDANSETRON
     Dates: start: 20201207, end: 20201207
  7. ROSUVASTATIN. [Concomitant]
     Active Substance: ROSUVASTATIN
  8. METOPROLOL SUCCINATE. [Concomitant]
     Active Substance: METOPROLOL SUCCINATE
  9. LATANOPROST DROPS [Concomitant]
     Active Substance: LATANOPROST
  10. ACETAMINOPHEN. [Concomitant]
     Active Substance: ACETAMINOPHEN
     Dates: start: 20201207, end: 20201207
  11. HEPARIN [Concomitant]
     Active Substance: HEPARIN SODIUM
     Dates: start: 20201208, end: 20201208
  12. VALSARTAN. [Concomitant]
     Active Substance: VALSARTAN
     Dates: start: 20201208, end: 20201208
  13. IRBESARTAN. [Concomitant]
     Active Substance: IRBESARTAN
  14. BAMLANIVIMAB. [Suspect]
     Active Substance: BAMLANIVIMAB
     Indication: COVID-19
     Dosage: ?          OTHER FREQUENCY:ONCE;?
     Route: 041
  15. GABAPENTIN. [Concomitant]
     Active Substance: GABAPENTIN
  16. INSULIN (GLARGINE, LISPRO AND REGULAR) [Concomitant]
  17. LIDOCAINE. [Concomitant]
     Active Substance: LIDOCAINE
  18. PANTOPRAZOLE [Concomitant]
     Active Substance: PANTOPRAZOLE

REACTIONS (1)
  - Atrial fibrillation [None]

NARRATIVE: CASE EVENT DATE: 20201207
